FAERS Safety Report 20305480 (Version 2)
Quarter: 2025Q1

REPORT INFORMATION
  Report Type: Spontaneous
  Country: US (occurrence: US)
  Receive Date: 20220106
  Receipt Date: 20250103
  Transmission Date: 20250408
  Serious: Yes (Hospitalization, Other)
  Sender: AMNEAL
  Company Number: US-AMNEAL PHARMACEUTICALS-2021-AMRX-00941

PATIENT
  Age: 31 Year
  Sex: Female
  Weight: 113 kg

DRUGS (6)
  1. ACTIVELLA [Suspect]
     Active Substance: ESTRADIOL\NORETHINDRONE ACETATE
     Indication: Endometriosis
     Dosage: 1 DOSAGE FORM, 1 /DAY
     Route: 048
     Dates: start: 20190301, end: 20200203
  2. ACTIVELLA [Suspect]
     Active Substance: ESTRADIOL\NORETHINDRONE ACETATE
     Dosage: 1 DOSAGE FORM, 1 /DAY
     Route: 048
     Dates: start: 20200203, end: 20210125
  3. ELAGOLIX [Suspect]
     Active Substance: ELAGOLIX
     Indication: Endometriosis
     Dosage: 200 MILLIGRAM, BID
     Route: 048
     Dates: start: 20190301, end: 20200203
  4. ELAGOLIX [Suspect]
     Active Substance: ELAGOLIX
     Dosage: 200 MILLIGRAM, BID
     Route: 048
     Dates: start: 20200203, end: 20210125
  5. TYLENOL WITH CODEINE [Concomitant]
     Active Substance: ACETAMINOPHEN\CODEINE PHOSPHATE
     Indication: Endometriosis
     Route: 048
     Dates: start: 20190109
  6. MOTRIN [Concomitant]
     Active Substance: IBUPROFEN
     Indication: Endometriosis
     Route: 048
     Dates: start: 20181023

REACTIONS (2)
  - Heavy menstrual bleeding [Recovered/Resolved]
  - Condition aggravated [Recovered/Resolved]

NARRATIVE: CASE EVENT DATE: 20210101
